FAERS Safety Report 6548858-4 (Version None)
Quarter: 2010Q1

REPORT INFORMATION
  Report Type: 
  Country: None (occurrence: None)
  Receive Date: 20100124
  Receipt Date: 20100111
  Transmission Date: 20100710
  Serious: No
  Sender: FDA-Public Use
  Company Number: US-ALLERGAN-0917414US

PATIENT
  Age: 69 Year
  Sex: Male

DRUGS (3)
  1. RESTASIS [Suspect]
     Indication: DRY EYE
     Dosage: 1 GTT, BID
     Route: 047
     Dates: start: 20091201
  2. OPTIVE [Concomitant]
     Indication: DRY EYE
  3. EYE DROPS [Concomitant]
     Indication: DRY EYE

REACTIONS (2)
  - ERYTHEMA OF EYELID [None]
  - OCULAR HYPERAEMIA [None]
